FAERS Safety Report 6369619-5 (Version None)
Quarter: 2009Q3

REPORT INFORMATION
  Report Type: 
  Country: None (occurrence: None)
  Receive Date: 20090923
  Receipt Date: 20090909
  Transmission Date: 20100115
  Serious: Yes (Hospitalization)
  Sender: FDA-Public Use
  Company Number: US-ROCHE-648087

PATIENT
  Sex: Female
  Weight: 67.6 kg

DRUGS (11)
  1. BONIVA [Suspect]
     Indication: OSTEOPOROSIS
     Route: 048
     Dates: start: 20060206, end: 20090401
  2. BONIVA [Suspect]
     Route: 048
     Dates: start: 20090728
  3. OSCAL [Concomitant]
     Dosage: DRUG: OSCAL 500 PLUS B
  4. CHOLESTEROL [Concomitant]
     Dosage: FORM: PILL
  5. POTASSIUM CHLORIDE [Concomitant]
  6. VERAPAMIL [Concomitant]
     Indication: HYPERTENSION
     Route: 048
  7. THYROID HORMONES [Concomitant]
     Dosage: THYROID MEDICATION
  8. TRIAMTERENE AND HYDROCHLOROTHIAZIDE [Concomitant]
     Indication: HYPERTENSION
     Dosage: TRIAMTERENE/HCTZ: 37.5/25 TAKEN DAILY
  9. MECLIZINE [Concomitant]
     Indication: VERTIGO
     Dosage: AS NEEDED (PRN)
     Route: 048
  10. DIAZEPAM [Concomitant]
     Indication: ANXIETY
     Dosage: AS NEEDED (PRN)
     Route: 048
  11. SYNTHROID [Concomitant]
     Indication: HYPOTHYROIDISM
     Dosage: TAKEN DAILY
     Route: 048

REACTIONS (1)
  - BONE CYST [None]
